FAERS Safety Report 24866894 (Version 3)
Quarter: 2025Q1

REPORT INFORMATION
  Report Type: Report from Study
  Country: MX (occurrence: MX)
  Receive Date: 20250121
  Receipt Date: 20250204
  Transmission Date: 20250408
  Serious: No
  Sender: ROCHE
  Company Number: MX-ROCHE-10000186078

PATIENT
  Age: 48 Year
  Sex: Male
  Weight: 106 kg

DRUGS (1)
  1. OCREVUS [Suspect]
     Active Substance: OCRELIZUMAB
     Indication: Multiple sclerosis
     Route: 040
     Dates: start: 20190307

REACTIONS (4)
  - Fall [Unknown]
  - Influenza [Recovered/Resolved with Sequelae]
  - Weight increased [Not Recovered/Not Resolved]
  - Foot fracture [Recovering/Resolving]

NARRATIVE: CASE EVENT DATE: 20200101
